FAERS Safety Report 16159472 (Version 3)
Quarter: 2019Q2

REPORT INFORMATION
  Report Type: Spontaneous
  Country: SK (occurrence: SK)
  Receive Date: 20190404
  Receipt Date: 20190419
  Transmission Date: 20190711
  Serious: Yes (Death, Hospitalization, Other)
  Sender: FDA-Public Use
  Company Number: SK-PFIZER INC-2019139255

PATIENT
  Age: 81 Year
  Sex: Female

DRUGS (12)
  1. ATORVASTATIN CALCIUM. [Suspect]
     Active Substance: ATORVASTATIN CALCIUM
     Dosage: 20 MG, 1X/DAY (0-0-1 TBL)
     Route: 048
  2. METOPROLOLSUCCINAAT [Suspect]
     Active Substance: METOPROLOL SUCCINATE
     Dosage: UNK
  3. METAMIZOLE [Suspect]
     Active Substance: METAMIZOLE
     Dosage: 500 MG, AS NEEDED
     Route: 048
  4. PERINDOPRIL ARGININE [Suspect]
     Active Substance: PERINDOPRIL ARGININE
     Dosage: 5 MG, 1X/DAY (1-0-0 TBL)
     Route: 048
  5. ENOXAPARIN [Suspect]
     Active Substance: ENOXAPARIN
     Dosage: UNK
  6. EPLERENONE. [Suspect]
     Active Substance: EPLERENONE
     Dosage: UNK
  7. AMLODIPINE BESILATE [Suspect]
     Active Substance: AMLODIPINE BESYLATE
     Dosage: 5 MG, 1X/DAY (1-0-0 TBL)
     Route: 048
  8. METFORMIN [Suspect]
     Active Substance: METFORMIN HYDROCHLORIDE
     Dosage: 500 MG, 2X/DAY (1-0-1 TBL)
     Route: 048
  9. FUROSEMIDE. [Suspect]
     Active Substance: FUROSEMIDE
     Dosage: UNK
  10. BISOPROLOL FUMARATE. [Suspect]
     Active Substance: BISOPROLOL FUMARATE
     Dosage: 5 MG, 1X/DAY (1-0-0 TBL)
     Route: 048
  11. ASPIRIN. [Suspect]
     Active Substance: ASPIRIN
     Dosage: 100 MG, 1X/DAY (0-1-0 TBL)
     Route: 048
  12. BROMAZEPAM [Suspect]
     Active Substance: BROMAZEPAM
     Dosage: 1.5 MG, 1X/DAY (0-0-1 TBL)
     Route: 048

REACTIONS (7)
  - Bronchitis [Recovering/Resolving]
  - Death [Fatal]
  - Nausea [Recovering/Resolving]
  - Acute myocardial infarction [Recovering/Resolving]
  - Cardiac failure acute [Recovering/Resolving]
  - Chest pain [Recovering/Resolving]
  - Stress cardiomyopathy [Recovering/Resolving]

NARRATIVE: CASE EVENT DATE: 20170308
